FAERS Safety Report 12585097 (Version 2)
Quarter: 2019Q1

REPORT INFORMATION
  Report Type: Spontaneous
  Country: FR (occurrence: FR)
  Receive Date: 20160723
  Receipt Date: 20190201
  Transmission Date: 20190417
  Serious: Yes (Hospitalization, Other)
  Sender: FDA-Public Use
  Company Number: FR-ACCORD-042576

PATIENT
  Age: 25 Year
  Sex: Male

DRUGS (10)
  1. PROPOFOL. [Concomitant]
     Active Substance: PROPOFOL
     Indication: EPILEPSY
     Dosage: RECEIVED FOR ONE DAY, AND STOPPED ON DAY 02
  2. CLONAZEPAM. [Concomitant]
     Active Substance: CLONAZEPAM
     Indication: SEIZURE
     Dosage: CLONAZEPAM 1 MG TWICE
  3. SUXAMETHONIUM [Concomitant]
     Active Substance: SUCCINYLCHOLINE
     Indication: ENDOTRACHEAL INTUBATION
  4. CLOBAZAM. [Concomitant]
     Active Substance: CLOBAZAM
     Indication: EPILEPSY
     Dosage: DOSE: 5 MG THRICE DAILY ON DAY 01, DECREASED TO 5 MG TWICE DAILY ON DAY 04, AND STOPPED ON DAY 05.
  5. ENOXAPARIN [Concomitant]
     Active Substance: ENOXAPARIN
     Indication: EPILEPSY
  6. THIOPENTAL [Concomitant]
     Active Substance: THIOPENTAL
     Indication: SEIZURE
     Route: 041
  7. ESOMEPRAZOLE. [Concomitant]
     Active Substance: ESOMEPRAZOLE MAGNESIUM
     Dosage: STRENGTH 40 MG
  8. FOSPHENYTOIN [Concomitant]
     Active Substance: FOSPHENYTOIN
     Indication: SEIZURE
  9. SUFENTANIL [Concomitant]
     Active Substance: SUFENTANIL
     Indication: SEDATION
     Route: 041
  10. LEVETIRACETAM. [Suspect]
     Active Substance: LEVETIRACETAM
     Indication: EPILEPSY
     Dosage: REINTRODUCED AT DOSE 500 MG TWICE DAILY AT DAY 02 OF ADMISSION AND THEN WITHDRAWN

REACTIONS (2)
  - Blood creatine phosphokinase increased [Recovering/Resolving]
  - Treatment noncompliance [Unknown]
